FAERS Safety Report 6134617-3 (Version None)
Quarter: 2009Q1

REPORT INFORMATION
  Report Type: 
  Country: None (occurrence: None)
  Receive Date: 20090327
  Receipt Date: 20090317
  Transmission Date: 20090719
  Serious: Yes (Other)
  Sender: FDA-Public Use
  Company Number: FR-JNJFOC-20090304640

PATIENT
  Sex: Female

DRUGS (4)
  1. REMICADE [Suspect]
     Route: 042
  2. REMICADE [Suspect]
     Indication: RHEUMATOID ARTHRITIS
     Dosage: 13 INFUSIONS
     Route: 042
  3. FORLAX [Concomitant]
  4. DOLIPRANE [Concomitant]

REACTIONS (4)
  - ERYTHEMA [None]
  - FACE OEDEMA [None]
  - PRURITUS GENERALISED [None]
  - SCAR [None]
